FAERS Safety Report 6805619-6 (Version None)
Quarter: 2010Q2

REPORT INFORMATION
  Report Type: 
  Country: None (occurrence: None)
  Receive Date: 20100628
  Receipt Date: 20080126
  Transmission Date: 20101027
  Serious: No
  Sender: FDA-Public Use
  Company Number: US-PFIZER INC-2008004757

PATIENT
  Sex: Female

DRUGS (3)
  1. GEODON [Suspect]
  2. LITHIUM [Concomitant]
  3. KLONOPIN [Concomitant]

REACTIONS (2)
  - MENSTRUATION IRREGULAR [None]
  - PAROSMIA [None]
